FAERS Safety Report 7544520-X (Version None)
Quarter: 2011Q2

REPORT INFORMATION
  Report Type: 
  Country: None (occurrence: None)
  Receive Date: 20110613
  Receipt Date: 20110607
  Transmission Date: 20111010
  Serious: Yes (Hospitalization)
  Sender: FDA-Public Use
  Company Number: JP-MERCK-1103USA01964

PATIENT
  Age: 80 Year
  Sex: Female
  Weight: 45 kg

DRUGS (1)
  1. FOSAMAX [Suspect]
     Indication: OSTEOPOROSIS
     Route: 048
     Dates: start: 20070308, end: 20110223

REACTIONS (2)
  - FEMUR FRACTURE [None]
  - FALL [None]
